FAERS Safety Report 6303508-7 (Version None)
Quarter: 2009Q3

REPORT INFORMATION
  Report Type: 
  Country: None (occurrence: None)
  Receive Date: 20090810
  Receipt Date: 20090804
  Transmission Date: 20100115
  Serious: No
  Sender: FDA-Public Use
  Company Number: US-B.I. PHARMACEUTICALS,INC./RIDGEFIELD-2009-BP-09203BP

PATIENT
  Age: 76 Year
  Sex: Female

DRUGS (3)
  1. FLOMAX [Suspect]
     Indication: BLADDER DISORDER
     Dosage: 0.4 MG
     Route: 048
     Dates: start: 20090701
  2. MICARDIS [Suspect]
     Indication: BLOOD PRESSURE INCREASED
     Dosage: 40 MG
     Route: 048
  3. COREG [Concomitant]
     Indication: BLOOD PRESSURE INCREASED
     Dosage: 20 MG
     Route: 048

REACTIONS (1)
  - BLOOD PRESSURE INCREASED [None]
